FAERS Safety Report 20555009 (Version 2)
Quarter: 2022Q1

REPORT INFORMATION
  Report Type: Spontaneous
  Country: DE (occurrence: DE)
  Receive Date: 20220304
  Receipt Date: 20220328
  Transmission Date: 20220423
  Serious: Yes (Hospitalization, Disabling, Other)
  Sender: FDA-Public Use
  Company Number: DE-009507513-2203DEU000705

PATIENT
  Age: 68 Year
  Sex: Male
  Weight: 88 kg

DRUGS (6)
  1. KEYTRUDA [Suspect]
     Active Substance: PEMBROLIZUMAB
     Indication: Non-small cell lung cancer metastatic
     Dosage: 200 MILLIGRAM, Q3W
     Dates: start: 201909, end: 202107
  2. ELIQUIS [Concomitant]
     Active Substance: APIXABAN
     Indication: Thrombosis
     Dosage: 2X 5MG
     Dates: start: 2019
  3. PANTOPRAZOLE SODIUM [Concomitant]
     Active Substance: PANTOPRAZOLE SODIUM
     Indication: Gastrointestinal stromal tumour
     Dosage: 40 MILLIGRAM
     Dates: start: 2019
  4. FLUTICASONE FUROATE\VILANTEROL TRIFENATATE [Concomitant]
     Active Substance: FLUTICASONE FUROATE\VILANTEROL TRIFENATATE
     Indication: Asthma
     Dosage: 92 MICROGRAM/22 MICROGRAM
     Dates: start: 2019
  5. CANDESARTAN [Concomitant]
     Active Substance: CANDESARTAN
     Indication: Hypertension
     Dosage: 8 MILLIGRAM, QD, FOR YEARS
  6. ALLOPURINOL [Concomitant]
     Active Substance: ALLOPURINOL
     Indication: Gout
     Dosage: 300 MILLIGRAM, FOR YEARS

REACTIONS (2)
  - Renal failure [Unknown]
  - Tubulointerstitial nephritis [Recovered/Resolved with Sequelae]

NARRATIVE: CASE EVENT DATE: 20211101
